FAERS Safety Report 6273104-9 (Version None)
Quarter: 2009Q3

REPORT INFORMATION
  Report Type: 
  Country: None (occurrence: None)
  Receive Date: 20090715
  Receipt Date: 20090715
  Transmission Date: 20100115
  Serious: No
  Sender: FDA-Public Use
  Company Number: None

PATIENT
  Sex: Female
  Weight: 81.6475 kg

DRUGS (3)
  1. CIPROFLOXACIN HCL [Suspect]
     Indication: CYSTITIS
     Dosage: 1 PILL EVERY 12 HOURS PO
     Route: 048
     Dates: start: 20090702, end: 20090705
  2. SEASONIQUE [Concomitant]
  3. ZOLOFT [Concomitant]

REACTIONS (1)
  - URTICARIA [None]
